FAERS Safety Report 15365455 (Version 7)
Quarter: 2018Q4

REPORT INFORMATION
  Report Type: Spontaneous
  Country: US (occurrence: US)
  Receive Date: 20180910
  Receipt Date: 20181221
  Transmission Date: 20190204
  Serious: Yes (Other)
  Sender: FDA-Public Use
  Company Number: US-PFIZER INC-2018362143

PATIENT
  Age: 51 Year
  Sex: Female
  Weight: 48 kg

DRUGS (6)
  1. DEPO-MEDROL [Suspect]
     Active Substance: METHYLPREDNISOLONE ACETATE
     Indication: MUSCLE TIGHTNESS
     Dosage: 80 MG, UNK [80MG BY INJECTION ONCE]
     Dates: start: 20180613
  2. TENS [Concomitant]
     Indication: MUSCLE TIGHTNESS
     Dosage: UNK
  3. FLECTOR [Suspect]
     Active Substance: DICLOFENAC EPOLAMINE
     Indication: MUSCULOSKELETAL STIFFNESS
     Dosage: UNK
  4. TOPAMAX [Concomitant]
     Active Substance: TOPIRAMATE
     Dosage: UNK
  5. CYMBALTA [Concomitant]
     Active Substance: DULOXETINE HYDROCHLORIDE
     Dosage: UNK
  6. PANTOPRAZOLE [Concomitant]
     Active Substance: PANTOPRAZOLE
     Dosage: UNK

REACTIONS (23)
  - Insomnia [Recovering/Resolving]
  - Bone pain [Not Recovered/Not Resolved]
  - Myalgia [Not Recovered/Not Resolved]
  - Cervicogenic headache [Recovered/Resolved]
  - Muscular weakness [Not Recovered/Not Resolved]
  - Respiratory disorder [Unknown]
  - Musculoskeletal stiffness [Unknown]
  - Neuritis [Unknown]
  - Anxiety [Not Recovered/Not Resolved]
  - Angina pectoris [Unknown]
  - Lacrimation increased [Not Recovered/Not Resolved]
  - Weight decreased [Not Recovered/Not Resolved]
  - Asthenia [Unknown]
  - Pain [Unknown]
  - Dry mouth [Not Recovered/Not Resolved]
  - Injection site mass [Not Recovered/Not Resolved]
  - Loss of personal independence in daily activities [Unknown]
  - Nerve injury [Unknown]
  - Hypoaesthesia [Unknown]
  - Occipital neuralgia [Unknown]
  - Conjunctivitis [Not Recovered/Not Resolved]
  - Infection [Unknown]
  - Arthropathy [Unknown]

NARRATIVE: CASE EVENT DATE: 201806
